FAERS Safety Report 19076674 (Version 1)
Quarter: 2021Q1

REPORT INFORMATION
  Report Type: Spontaneous
  Country: US (occurrence: US)
  Receive Date: 20210330
  Receipt Date: 20210330
  Transmission Date: 20210420
  Serious: Yes (Hospitalization, Other)
  Sender: FDA-Public Use
  Company Number: None

PATIENT

DRUGS (1)
  1. WARFARIN [Suspect]
     Active Substance: WARFARIN

REACTIONS (5)
  - Toxicity to various agents [None]
  - Skin necrosis [None]
  - Dyspnoea [None]
  - Protein C increased [None]
  - Pain in extremity [None]

NARRATIVE: CASE EVENT DATE: 20190206
